FAERS Safety Report 25289757 (Version 3)
Quarter: 2025Q2

REPORT INFORMATION
  Report Type: Report from Study
  Country: CA (occurrence: CA)
  Receive Date: 20250509
  Receipt Date: 20250602
  Transmission Date: 20250717
  Serious: Yes (Other)
  Sender: BAUSCH AND LOMB
  Company Number: CA-BAUSCH-BL-2024-016365

PATIENT
  Age: 83 Year
  Sex: Male

DRUGS (4)
  1. SILIQ [Suspect]
     Active Substance: BRODALUMAB
     Indication: Prophylaxis
     Dosage: 210MG/1.5 ML, WEEKLY (0,1 AND 2)
     Route: 058
     Dates: start: 20241017, end: 202410
  2. SILIQ [Suspect]
     Active Substance: BRODALUMAB
     Indication: Product use in unapproved indication
     Dosage: 210MG/1.5 ML, Q2 WEEKS
     Route: 058
     Dates: start: 202411
  3. EFUDEX [Suspect]
     Active Substance: FLUOROURACIL
     Indication: Product used for unknown indication
     Route: 065
  4. DESONIDE [Concomitant]
     Active Substance: DESONIDE
     Indication: Product used for unknown indication
     Route: 065

REACTIONS (12)
  - Precancerous skin lesion [Recovered/Resolved]
  - Condition aggravated [Recovered/Resolved]
  - Application site haemorrhage [Not Recovered/Not Resolved]
  - Application site inflammation [Recovering/Resolving]
  - Application site ulcer [Unknown]
  - Application site rash [Unknown]
  - Application site discomfort [Unknown]
  - Application site exfoliation [Unknown]
  - Application site pain [Recovered/Resolved]
  - Drug ineffective for unapproved indication [Unknown]
  - Product packaging confusion [Unknown]
  - Product use in unapproved indication [Unknown]

NARRATIVE: CASE EVENT DATE: 20240101
